FAERS Safety Report 4866261-X (Version None)
Quarter: 2005Q4

REPORT INFORMATION
  Report Type: 
  Country: None (occurrence: None)
  Receive Date: 20051220
  Receipt Date: 20051205
  Transmission Date: 20060501
  Serious: Yes (Hospitalization)
  Sender: FDA-Public Use
  Company Number: 8013471

PATIENT
  Sex: Male

DRUGS (3)
  1. KEPPRA [Suspect]
     Dosage: 1500 MG 2/D
  2. PHENYTOIN [Concomitant]
  3. LAMICTAL [Concomitant]

REACTIONS (1)
  - EPILEPSY [None]
